FAERS Safety Report 6804669-3 (Version None)
Quarter: 2010Q2

REPORT INFORMATION
  Report Type: 
  Country: None (occurrence: None)
  Receive Date: 20100628
  Receipt Date: 20070901
  Transmission Date: 20101027
  Serious: No
  Sender: FDA-Public Use
  Company Number: US-PFIZER INC-2007033859

PATIENT
  Sex: Female
  Weight: 78.47 kg

DRUGS (6)
  1. XALATAN [Suspect]
     Indication: OPEN ANGLE GLAUCOMA
     Dosage: 1 DROP IN EACH EYE
     Route: 047
     Dates: start: 20070326, end: 20070430
  2. SYNTHROID [Concomitant]
  3. DIET FORMULATIONS FOR TREATMENT OF OBESITY [Concomitant]
  4. HALDOL [Concomitant]
  5. TENUATE [Concomitant]
  6. ACETYLSALICYLIC ACID [Concomitant]

REACTIONS (2)
  - DRUG EFFECT DECREASED [None]
  - INTENTIONAL DRUG MISUSE [None]
